FAERS Safety Report 4370233-1 (Version None)
Quarter: 2004Q2

REPORT INFORMATION
  Report Type: 
  Country: None (occurrence: None)
  Receive Date: 20040603
  Receipt Date: 20040322
  Transmission Date: 20050107
  Serious: No
  Sender: FDA-Public Use
  Company Number: US-BRISTOL-MYERS SQUIBB COMPANY-12539219

PATIENT
  Age: 22 Year
  Sex: Male
  Weight: 111 kg

DRUGS (4)
  1. ABILIFY [Suspect]
     Indication: BIPOLAR DISORDER
     Dosage: INITIALLY
     Route: 048
  2. KLONOPIN [Concomitant]
  3. CLARITIN-D [Concomitant]
  4. LITHIUM CARBONATE [Concomitant]

REACTIONS (2)
  - DRUG INEFFECTIVE [None]
  - SOMNOLENCE [None]
